FAERS Safety Report 9778252 (Version 2)
Quarter: 2013Q4

REPORT INFORMATION
  Report Type: Spontaneous
  Country: SE (occurrence: SE)
  Receive Date: 20131223
  Receipt Date: 20131223
  Transmission Date: 20140711
  Serious: Yes (Hospitalization, Other)
  Sender: FDA-Public Use
  Company Number: SE-ELI_LILLY_AND_COMPANY-SE201308009124

PATIENT
  Age: 63 Year
  Sex: Male

DRUGS (3)
  1. HUMULIN REGULAR [Suspect]
     Indication: DIABETES MELLITUS
     Dosage: 18 DF, TID
     Route: 058
  2. HUMULIN NPH [Suspect]
     Indication: DIABETES MELLITUS
     Route: 065
  3. INSULATARD                         /00646002/ [Concomitant]

REACTIONS (3)
  - Pancreatic carcinoma [Unknown]
  - Hypoglycaemia [Recovered/Resolved]
  - Wrong drug administered [Recovered/Resolved]
